FAERS Safety Report 17022716 (Version 2)
Quarter: 2019Q4

REPORT INFORMATION
  Report Type: Spontaneous
  Country: AR (occurrence: AR)
  Receive Date: 20191112
  Receipt Date: 20191203
  Transmission Date: 20200122
  Serious: Yes (Death, Hospitalization)
  Sender: FDA-Public Use
  Company Number: AR-MYLANLABS-2019M1107443

PATIENT
  Sex: Female

DRUGS (1)
  1. LAPENAX [Suspect]
     Active Substance: CLOZAPINE
     Indication: PRODUCT USED FOR UNKNOWN INDICATION
     Dosage: UNK
     Dates: start: 20110427, end: 2019

REACTIONS (3)
  - Deep vein thrombosis [Unknown]
  - Death [Fatal]
  - Emphysema [Unknown]

NARRATIVE: CASE EVENT DATE: 2019
